FAERS Safety Report 12896196 (Version 1)
Quarter: 2016Q4

REPORT INFORMATION
  Report Type: Spontaneous
  Country: US (occurrence: US)
  Receive Date: 20161031
  Receipt Date: 20161031
  Transmission Date: 20170207
  Serious: No
  Sender: FDA-Public Use
  Company Number: US-JAZZ-2016-US-015979

PATIENT
  Sex: Female

DRUGS (23)
  1. CLOPIDOGREL [Concomitant]
     Active Substance: CLOPIDOGREL BISULFATE
  2. VITAMIN D3 [Concomitant]
     Active Substance: CHOLECALCIFEROL
  3. ALEVE [Concomitant]
     Active Substance: NAPROXEN SODIUM
  4. AGGRENOX [Concomitant]
     Active Substance: ASPIRIN\DIPYRIDAMOLE
  5. VITAMIN E [Concomitant]
     Active Substance: .ALPHA.-TOCOPHEROL
  6. METOPROLOL SUCCINATE. [Concomitant]
     Active Substance: METOPROLOL SUCCINATE
  7. SIMVASTATIN. [Concomitant]
     Active Substance: SIMVASTATIN
  8. TEMAZEPAM. [Concomitant]
     Active Substance: TEMAZEPAM
  9. HYZAAR [Concomitant]
     Active Substance: HYDROCHLOROTHIAZIDE\LOSARTAN POTASSIUM
  10. XYREM [Suspect]
     Active Substance: SODIUM OXYBATE
     Indication: NARCOLEPSY
     Dosage: 2.25 G, BID
     Route: 048
     Dates: start: 200811, end: 200812
  11. LIPITOR [Concomitant]
     Active Substance: ATORVASTATIN CALCIUM
  12. XYREM [Suspect]
     Active Substance: SODIUM OXYBATE
     Indication: CATAPLEXY
     Dosage: DOSE ADJUSTMENTS
     Route: 048
     Dates: start: 200812, end: 201407
  13. TYLENOL [Concomitant]
     Active Substance: ACETAMINOPHEN
  14. VITAMIN A [Concomitant]
     Active Substance: VITAMIN A
  15. BUPROPION HCL [Concomitant]
     Active Substance: BUPROPION HYDROCHLORIDE
  16. MVI [Concomitant]
     Active Substance: VITAMINS
  17. IBUPROFEN. [Concomitant]
     Active Substance: IBUPROFEN
  18. PRESERVISION AREDS [Concomitant]
     Active Substance: MINERALS\VITAMINS
  19. CLONAZEPAM. [Concomitant]
     Active Substance: CLONAZEPAM
  20. XYREM [Suspect]
     Active Substance: SODIUM OXYBATE
     Dosage: 4.5 G, BID
     Route: 048
     Dates: start: 201407
  21. ASPIRIN. [Concomitant]
     Active Substance: ASPIRIN
  22. DOCUSATE SODIUM AND SENNA [Concomitant]
     Active Substance: DOCUSATE SODIUM\SENNOSIDES
  23. CALCIUM [Concomitant]
     Active Substance: CALCIUM

REACTIONS (3)
  - Arthropathy [Not Recovered/Not Resolved]
  - Blister [Not Recovered/Not Resolved]
  - Arthritis [Unknown]
